FAERS Safety Report 6638169-0 (Version None)
Quarter: 2010Q1

REPORT INFORMATION
  Report Type: 
  Country: None (occurrence: None)
  Receive Date: 20100301
  Receipt Date: 20090501
  Transmission Date: 20100710
  Serious: Yes (Other)
  Sender: FDA-Public Use
  Company Number: ALA_00291_2009

PATIENT
  Age: 84 Year
  Sex: Female

DRUGS (6)
  1. REGLAN [Suspect]
     Indication: DYSPEPSIA
     Dosage: 5 MG QD ORAL; SEE IMAGE
     Route: 048
     Dates: start: 20081101, end: 20090301
  2. REGLAN [Suspect]
     Indication: DYSPEPSIA
     Dosage: 5 MG QD ORAL; SEE IMAGE
     Route: 048
     Dates: start: 20090301, end: 20090401
  3. LEVOXYL [Concomitant]
  4. OMEPRAZOLE [Concomitant]
  5. KLOR-CON [Concomitant]
  6. CALCIUM + VITAMIN D [Concomitant]

REACTIONS (1)
  - EXTRAPYRAMIDAL DISORDER [None]
